FAERS Safety Report 9057125 (Version 1)
Quarter: 2013Q1

REPORT INFORMATION
  Report Type: Report from Study
  Country: US (occurrence: US)
  Receive Date: 20130131
  Receipt Date: 20130131
  Transmission Date: 20140127
  Serious: No
  Sender: FDA-Public Use
  Company Number: US-ABBOTT-12P-163-0995531-00

PATIENT
  Age: 11 Year
  Sex: Female

DRUGS (4)
  1. HUMIRA [Suspect]
     Indication: JUVENILE IDIOPATHIC ARTHRITIS
     Dosage: WEEKLY
     Dates: start: 20111223
  2. METHOTREXATE [Concomitant]
     Indication: JUVENILE IDIOPATHIC ARTHRITIS
     Dosage: WEEKLY
     Route: 030
  3. APRISO [Concomitant]
     Indication: CROHN^S DISEASE
     Dosage: 0.375 MG DAILY
     Route: 048
  4. MULTIVITAMINS [Concomitant]
     Indication: VITAMIN SUPPLEMENTATION
     Dosage: DAILY
     Route: 048

REACTIONS (2)
  - Injection site pain [Recovered/Resolved]
  - Injection site pain [Recovered/Resolved]
